FAERS Safety Report 13593352 (Version 3)
Quarter: 2017Q4

REPORT INFORMATION
  Report Type: Spontaneous
  Country: US (occurrence: US)
  Receive Date: 20170530
  Receipt Date: 20171117
  Transmission Date: 20180320
  Serious: Yes (Other)
  Sender: FDA-Public Use
  Company Number: PHEH2017US015738

PATIENT
  Age: 63 Year
  Sex: Female

DRUGS (1)
  1. VOTRIENT [Suspect]
     Active Substance: PAZOPANIB HYDROCHLORIDE
     Indication: RENAL CANCER
     Dosage: 400 MG, QD
     Route: 048
     Dates: start: 20170429

REACTIONS (9)
  - Anxiety [Unknown]
  - Fatigue [Unknown]
  - Nausea [Unknown]
  - Stomatitis [Unknown]
  - Depression [Unknown]
  - Diarrhoea [Recovering/Resolving]
  - Arthralgia [Unknown]
  - Abdominal discomfort [Unknown]
  - Musculoskeletal pain [Unknown]

NARRATIVE: CASE EVENT DATE: 20170622
